FAERS Safety Report 5008273-1 (Version None)
Quarter: 2006Q2

REPORT INFORMATION
  Report Type: 
  Country: None (occurrence: None)
  Receive Date: 20060523
  Receipt Date: 20050829
  Transmission Date: 20061013
  Serious: Yes (Other)
  Sender: FDA-Public Use
  Company Number: US-GLAXOSMITHKLINE-A0572216A

PATIENT
  Age: 52 Year
  Sex: Female

DRUGS (13)
  1. FLOLAN [Suspect]
     Dosage: 5000NG CONTINUOUS
     Route: 042
     Dates: start: 20050827
  2. VIAGRA [Concomitant]
  3. VANCOMYCIN [Concomitant]
  4. PEPCID [Concomitant]
  5. LEVAQUIN [Concomitant]
  6. ZOFRAN [Concomitant]
  7. XOPENEX [Concomitant]
  8. NOREPINEPHRINE [Concomitant]
  9. FENTANYL [Concomitant]
  10. POTASSIUM CHLORIDE [Concomitant]
  11. ASPIRIN [Concomitant]
  12. LASIX [Concomitant]
  13. HEPARIN [Concomitant]

REACTIONS (1)
  - THROMBOCYTOPENIA [None]
